FAERS Safety Report 6151331-9 (Version None)
Quarter: 2009Q2

REPORT INFORMATION
  Report Type: 
  Country: None (occurrence: None)
  Receive Date: 20090408
  Receipt Date: 20090327
  Transmission Date: 20091009
  Serious: Yes (Hospitalization)
  Sender: FDA-Public Use
  Company Number: IPS_01480_2009

PATIENT
  Sex: Male

DRUGS (6)
  1. APO-GO (APO-GO - APOMORPHINE HYDROCHLORIDE) (NOT SPECIFIED) [Suspect]
     Indication: PARKINSON'S DISEASE
     Dosage: (8 MG PER HOUR FOR 17 WEEKS 0 DAYS [FROM 07:00 H. TO 22:00 H. DAILY] VIA PUMP SUBCUTANEOUS)
     Route: 058
     Dates: start: 20081101, end: 20090227
  2. MADOPAR /01585301/ [Concomitant]
  3. SIFROL [Concomitant]
  4. IMIPRAMINE [Concomitant]
  5. SEROQUEL [Concomitant]
  6. NORMOC [Concomitant]

REACTIONS (6)
  - ABNORMAL DREAMS [None]
  - CONFUSIONAL STATE [None]
  - INDURATION [None]
  - LOSS OF CONSCIOUSNESS [None]
  - NODULE [None]
  - PSYCHOTIC DISORDER [None]
